FAERS Safety Report 6069822-8 (Version None)
Quarter: 2009Q1

REPORT INFORMATION
  Report Type: 
  Country: None (occurrence: None)
  Receive Date: 20090209
  Receipt Date: 20090128
  Transmission Date: 20090719
  Serious: Yes (Hospitalization)
  Sender: FDA-Public Use
  Company Number: FR-BIOGENIDEC-2009BI000715

PATIENT
  Age: 38 Year
  Sex: Female

DRUGS (2)
  1. TYSABRI [Suspect]
     Indication: MULTIPLE SCLEROSIS
     Route: 042
     Dates: start: 20080628, end: 20081211
  2. LIORESAL [Concomitant]
     Indication: MUSCLE CONTRACTURE

REACTIONS (2)
  - ANTINUCLEAR ANTIBODY [None]
  - ERYTHEMA MULTIFORME [None]
